FAERS Safety Report 6456104-5 (Version None)
Quarter: 2009Q4

REPORT INFORMATION
  Report Type: 
  Country: None (occurrence: None)
  Receive Date: 20091124
  Receipt Date: 20091124
  Transmission Date: 20100525
  Serious: Yes (Life-Threatening, Hospitalization)
  Sender: FDA-Public Use
  Company Number: None

PATIENT
  Sex: Female
  Weight: 89.2 kg

DRUGS (1)
  1. GAMUNEX [Suspect]
     Indication: PERIPHERAL MOTOR NEUROPATHY
     Dosage: GAMUNEX 60G DAILY FOR 5 DAYS INTRAVENOUS INFUSION
     Route: 042
     Dates: start: 20091109, end: 20091113

REACTIONS (3)
  - CHEST DISCOMFORT [None]
  - FATIGUE [None]
  - HAEMOLYSIS [None]
